FAERS Safety Report 6697003-3 (Version None)
Quarter: 2010Q2

REPORT INFORMATION
  Report Type: 
  Country: None (occurrence: None)
  Receive Date: 20100426
  Receipt Date: 20100419
  Transmission Date: 20101027
  Serious: Yes (Death)
  Sender: FDA-Public Use
  Company Number: RS-SANOFI-AVENTIS-A01200909704

PATIENT
  Age: 69 Year
  Sex: Female

DRUGS (7)
  1. OXALIPLATIN [Suspect]
     Route: 041
  2. FLUOROURACIL [Suspect]
     Route: 041
  3. INVESTIGATIONAL DRUG [Concomitant]
     Dates: start: 20090810, end: 20090909
  4. METOPROLOL [Concomitant]
     Dates: start: 20090120
  5. CILAZAPRIL [Concomitant]
     Dates: start: 20090120
  6. GLIMEPIRIDE [Concomitant]
     Dates: start: 20090210
  7. METFORMIN HCL [Concomitant]
     Dates: start: 20090210

REACTIONS (1)
  - DEATH [None]
